FAERS Safety Report 9243779 (Version 1)
Quarter: 2013Q1

REPORT INFORMATION
  Report Type: Spontaneous
  Country: US (occurrence: None)
  Receive Date: 20121123
  Receipt Date: 20121123
  Transmission Date: 20140127
  Serious: No
  Sender: FDA-Public Use
  Company Number: 358165

PATIENT
  Age: 63 Year
  Sex: Female

DRUGS (3)
  1. VICTOZA (LIRAGLUTIDE) SOLUTION FOR INJECTION, 6MG/ML [Suspect]
     Indication: TYPE 2 DIABETES MELLITUS
     Route: 058
  2. METFORMIN (METFORMIN) TABLET [Concomitant]
  3. GLIMEPIRIDE (GLIMEPIRIED) [Concomitant]

REACTIONS (8)
  - Insomnia [None]
  - Dizziness [None]
  - Hyperhidrosis [None]
  - Back pain [None]
  - Dehydration [None]
  - Injection site haematoma [None]
  - Blood glucose increased [None]
  - Diarrhoea [None]
